FAERS Safety Report 14116286 (Version 1)
Quarter: 2017Q4

REPORT INFORMATION
  Report Type: Spontaneous
  Country: US (occurrence: US)
  Receive Date: 20171023
  Receipt Date: 20171023
  Transmission Date: 20180321
  Serious: Yes (Other)
  Sender: FDA-Public Use
  Company Number: US-PURDUE PHARMA-USA-2017-0138715

PATIENT
  Sex: Male

DRUGS (1)
  1. OXYCONTIN [Suspect]
     Active Substance: OXYCODONE HYDROCHLORIDE
     Indication: DRUG USE DISORDER
     Dosage: 30 MG, UNK
     Route: 048

REACTIONS (4)
  - Drug abuse [Recovering/Resolving]
  - Drug dependence [Recovering/Resolving]
  - Vomiting [Unknown]
  - Malaise [Unknown]
